FAERS Safety Report 9438091 (Version 4)
Quarter: 2014Q3

REPORT INFORMATION
  Report Type: Report from Study
  Country: JP (occurrence: JP)
  Receive Date: 20130802
  Receipt Date: 20140805
  Transmission Date: 20150326
  Serious: Yes (Death)
  Sender: FDA-Public Use
  Company Number: JP-PFIZER INC-2013221719

PATIENT
  Age: 86 Year
  Sex: Female
  Weight: 53 kg

DRUGS (16)
  1. KALGUT [Concomitant]
     Active Substance: DENOPAMINE
     Dosage: 30 MG/DAY
     Route: 048
  2. RISPERIDONE. [Concomitant]
     Active Substance: RISPERIDONE
     Dosage: 2 TABLETS/DAY
     Route: 048
  3. SIGMART [Concomitant]
     Active Substance: NICORANDIL
     Dosage: 15 MG/DAY
     Route: 048
  4. TAKEPRON OD [Concomitant]
     Active Substance: LANSOPRAZOLE
     Dosage: 30 MG/DAY
     Route: 048
  5. FERROMIA [Concomitant]
     Active Substance: FERROUS CITRATE
     Dosage: 100 MG/DAY
     Route: 048
  6. NEGMIN SUGAR [Concomitant]
     Dosage: 300 G/DAY
     Route: 061
     Dates: start: 20130722, end: 20130722
  7. TULOBUTEROL [Concomitant]
     Active Substance: TULOBUTEROL
     Dosage: 1 SHEET/DAY
     Route: 062
     Dates: start: 20130709
  8. TYGACIL [Suspect]
     Active Substance: TIGECYCLINE
     Indication: ACINETOBACTER INFECTION
     Dosage: 150 MG, DAILY
     Route: 042
     Dates: start: 20130717, end: 20130717
  9. GEBEN [Concomitant]
     Dosage: 100 G/DAY
     Route: 061
     Dates: start: 20130722, end: 20130722
  10. ELNEOPA NO.2 INJECTION [Concomitant]
     Dosage: 1 KIT/DAY
     Dates: start: 20130713
  11. TYGACIL [Suspect]
     Active Substance: TIGECYCLINE
     Indication: SKIN INFECTION
     Dosage: 100 MG, DAILY
     Route: 042
     Dates: start: 20130718, end: 20130725
  12. LASIX [Concomitant]
     Active Substance: FUROSEMIDE
     Dosage: 40 MG/DAY
     Route: 048
  13. THIOSPEN [Concomitant]
     Dosage: 1 AMPULE/DAY
     Dates: start: 20130713
  14. SPIRONOLACTONE. [Concomitant]
     Active Substance: SPIRONOLACTONE
     Dosage: 1 TABLET/DAY
     Route: 048
  15. NOVOLIN R [Concomitant]
     Active Substance: INSULIN HUMAN
     Dosage: 0.1 ML/DAY
     Dates: start: 20130713
  16. EXACIN [Concomitant]
     Active Substance: ISEPAMICIN
     Dosage: 2 AMPULES /DAY
     Dates: start: 20130716, end: 20130719

REACTIONS (1)
  - Septic shock [Fatal]

NARRATIVE: CASE EVENT DATE: 20130726
